FAERS Safety Report 4622556-6 (Version None)
Quarter: 2005Q1

REPORT INFORMATION
  Report Type: 
  Country: None (occurrence: None)
  Receive Date: 20050317
  Receipt Date: 20040723
  Transmission Date: 20050727
  Serious: Yes (Other)
  Sender: FDA-Public Use
  Company Number: PHEH2004US07721

PATIENT
  Age: 72 Year
  Sex: Male
  Weight: 74.8 kg

DRUGS (8)
  1. TRILEPTAL [Suspect]
     Indication: CONVULSION
     Dosage: SEE IMAGE
     Route: 048
     Dates: start: 20000501
  2. TRILEPTAL [Suspect]
     Indication: CONVULSION
     Dosage: SEE IMAGE
     Route: 048
     Dates: start: 20040101
  3. DETROL [Suspect]
     Indication: ENURESIS
     Dosage: 4 MG, QHS, ORAL
     Route: 048
     Dates: start: 20040201
  4. ARICEPT [Suspect]
     Indication: DEMENTIA
     Dosage: 10 MG, QD, ORAL
     Route: 048
     Dates: start: 20040301
  5. FUROSEMIDE [Concomitant]
  6. SERTRALINE (SERTRALINE) [Concomitant]
  7. HYTRIN [Concomitant]
  8. RISPERDAL [Concomitant]

REACTIONS (5)
  - ASTHENIA [None]
  - CONVULSION [None]
  - DIFFICULTY IN WALKING [None]
  - DRUG INTERACTION POTENTIATION [None]
  - HYPONATRAEMIA [None]
